FAERS Safety Report 10242052 (Version 3)
Quarter: 2014Q3

REPORT INFORMATION
  Report Type: Spontaneous
  Country: US (occurrence: None)
  Receive Date: 20140613
  Receipt Date: 20140722
  Transmission Date: 20150326
  Serious: Yes (Hospitalization)
  Sender: FDA-Public Use
  Company Number: UNT-2014-001571

PATIENT
  Age: 52 Year
  Sex: Female
  Weight: 64.4 kg

DRUGS (1)
  1. REMODULIN [Suspect]
     Active Substance: TREPROSTINIL
     Indication: COR PULMONALE CHRONIC
     Route: 058
     Dates: start: 20130404

REACTIONS (6)
  - Infusion site swelling [None]
  - Acute pulmonary oedema [None]
  - Respiratory failure [None]
  - Infusion site erythema [None]
  - Respiratory arrest [None]
  - Infusion site pain [None]

NARRATIVE: CASE EVENT DATE: 20140501
